FAERS Safety Report 13158228 (Version 2)
Quarter: 2017Q1

REPORT INFORMATION
  Report Type: Report from Study
  Country: JP (occurrence: JP)
  Receive Date: 20170127
  Receipt Date: 20170220
  Transmission Date: 20170428
  Serious: Yes (Death)
  Sender: FDA-Public Use
  Company Number: JP-UCBSA-2017002687

PATIENT
  Age: 73 Year
  Sex: Male
  Weight: 65 kg

DRUGS (2)
  1. LEVETIRACETAM. [Suspect]
     Active Substance: LEVETIRACETAM
     Indication: SIMPLE PARTIAL SEIZURES
     Dosage: 500 MG, 2X/DAY (BID)
     Route: 048
     Dates: start: 20140401, end: 20160828
  2. SODIUM VALPROATE [Concomitant]
     Active Substance: VALPROATE SODIUM
     Indication: SIMPLE PARTIAL SEIZURES
     Dosage: 600 MG, DAILY DOSE
     Route: 048
     Dates: end: 20160828

REACTIONS (1)
  - Pneumonia aspiration [Fatal]

NARRATIVE: CASE EVENT DATE: 20160803
